FAERS Safety Report 5244067-X (Version None)
Quarter: 2007Q1

REPORT INFORMATION
  Report Type: 
  Country: None (occurrence: None)
  Receive Date: 20070222
  Receipt Date: 20070216
  Transmission Date: 20070707
  Serious: Yes (Death, Hospitalization, Other)
  Sender: FDA-Public Use
  Company Number: PHEH2007US02049

PATIENT
  Age: 53 Year
  Sex: Male

DRUGS (3)
  1. SANDOSTATIN LAR [Suspect]
     Indication: CARCINOID SYNDROME
     Dosage: UNK, QMO
     Dates: start: 20060801, end: 20061001
  2. ANTIHYPERTENSIVE DRUGS [Concomitant]
  3. ANTIDIABETICS [Concomitant]

REACTIONS (7)
  - ABDOMINAL PAIN [None]
  - DIARRHOEA [None]
  - FLATULENCE [None]
  - INTESTINAL OBSTRUCTION [None]
  - INTESTINAL PERFORATION [None]
  - SEPSIS [None]
  - WEIGHT DECREASED [None]
